FAERS Safety Report 13757650 (Version 3)
Quarter: 2017Q3

REPORT INFORMATION
  Report Type: Spontaneous
  Country: GB (occurrence: GB)
  Receive Date: 20170717
  Receipt Date: 20170825
  Transmission Date: 20171127
  Serious: Yes (Other)
  Sender: FDA-Public Use
  Company Number: GB-009507513-1512GBR001947

PATIENT
  Age: 17 Year
  Sex: Female

DRUGS (1)
  1. NEXPLANON [Suspect]
     Active Substance: ETONOGESTREL
     Indication: CONTRACEPTION
     Dosage: 1 IMPLANT, INTO THE INNER ASPECT OF THE LEFT UPPER ARM, UNKNOWN
     Route: 059
     Dates: start: 20140612

REACTIONS (5)
  - Device embolisation [Not Recovered/Not Resolved]
  - Menstruation irregular [Unknown]
  - Drug administered to patient of inappropriate age [Unknown]
  - Complication of device removal [Not Recovered/Not Resolved]
  - Complication associated with device [Recovered/Resolved]

NARRATIVE: CASE EVENT DATE: 20140612
